FAERS Safety Report 9042106 (Version 1)
Quarter: 2013Q1

REPORT INFORMATION
  Report Type: Spontaneous
  Country: ES (occurrence: ES)
  Receive Date: 20130129
  Receipt Date: 20130129
  Transmission Date: 20140127
  Serious: Yes (Other)
  Sender: FDA-Public Use
  Company Number: ES-B.I. PHARMACEUTICALS,INC./RIDGEFIELD-2013-BI-01923GD

PATIENT
  Age: 26 Year
  Sex: Female

DRUGS (7)
  1. RANITIDINE [Suspect]
     Indication: ANGIOEDEMA
     Dosage: 150 MG
  2. RUPATADINE [Suspect]
     Indication: ANGIOEDEMA
     Dosage: 10 MG
  3. DEXCHLORPHENIRAMINE [Suspect]
     Indication: ANGIOEDEMA
     Dosage: 6 MG
  4. DAPSONE [Suspect]
     Indication: ANGIOEDEMA
     Dosage: 50 MG
  5. TRANEXAMIC ACID [Suspect]
     Indication: ANGIOEDEMA
     Dosage: 3 G
  6. HUMAN C1-ESTERASE INHIBITOR [Suspect]
     Indication: ANGIOEDEMA
     Dosage: 500 U
  7. HYDROXYZINE [Concomitant]
     Indication: STRESS AT WORK
     Dosage: 25 MG

REACTIONS (2)
  - Drug ineffective [Unknown]
  - Headache [Unknown]
